FAERS Safety Report 15956022 (Version 1)
Quarter: 2019Q1

REPORT INFORMATION
  Report Type: Spontaneous
  Country: US (occurrence: US)
  Receive Date: 20190213
  Receipt Date: 20190213
  Transmission Date: 20190417
  Serious: No
  Sender: FDA-Public Use
  Company Number: US-BAYER-2019-030204

PATIENT
  Age: 88 Year
  Sex: Female

DRUGS (1)
  1. GADAVIST [Suspect]
     Active Substance: GADOBUTROL
     Indication: NUCLEAR MAGNETIC RESONANCE IMAGING
     Dosage: 5.4 ML, ONCE
     Route: 042
     Dates: start: 20190103, end: 20190103

REACTIONS (1)
  - Urticaria [None]

NARRATIVE: CASE EVENT DATE: 20190103
